FAERS Safety Report 11826698 (Version 1)
Quarter: 2015Q4

REPORT INFORMATION
  Report Type: Spontaneous
  Country: DE (occurrence: DE)
  Receive Date: 20151211
  Receipt Date: 20151211
  Transmission Date: 20160305
  Serious: Yes (Hospitalization, Other)
  Sender: FDA-Public Use
  Company Number: PHHY2015DE160862

PATIENT
  Sex: Male

DRUGS (2)
  1. VOTRIENT [Suspect]
     Active Substance: PAZOPANIB HYDROCHLORIDE
     Dosage: 400 MG, BID
     Route: 065
     Dates: start: 201209
  2. VOTRIENT [Suspect]
     Active Substance: PAZOPANIB HYDROCHLORIDE
     Indication: RENAL CELL CARCINOMA
     Dosage: 200 MG, UNK
     Route: 065
     Dates: start: 201202

REACTIONS (10)
  - Cardiac failure [Unknown]
  - Metastases to skin [Unknown]
  - Metastases to soft tissue [Unknown]
  - Cerebral haemorrhage [Unknown]
  - Diarrhoea [Unknown]
  - Pneumonia [Unknown]
  - Rash [Unknown]
  - Hypertensive crisis [Unknown]
  - Infection [Unknown]
  - Muscle swelling [Unknown]

NARRATIVE: CASE EVENT DATE: 20120409
